FAERS Safety Report 11948501 (Version 6)
Quarter: 2018Q1

REPORT INFORMATION
  Report Type: Report from Study
  Country: DE (occurrence: DE)
  Receive Date: 20160125
  Receipt Date: 20180328
  Transmission Date: 20180508
  Serious: Yes (Life-Threatening, Hospitalization, Congenital Anomaly, Other)
  Sender: FDA-Public Use
  Company Number: PHHY2016DE008003

PATIENT
  Age: 5 Day
  Sex: Female
  Weight: 3.25 kg

DRUGS (1)
  1. GILENYA [Suspect]
     Active Substance: FINGOLIMOD HYDROCHLORIDE
     Indication: FOETAL EXPOSURE DURING PREGNANCY
     Dosage: MATERNAL DOSE: 0.5 MG, QD
     Route: 064

REACTIONS (9)
  - Seizure [Unknown]
  - Oesophageal atresia [Recovered/Resolved with Sequelae]
  - Foetal exposure during pregnancy [Unknown]
  - Hypoxic-ischaemic encephalopathy [Unknown]
  - Convulsion neonatal [Unknown]
  - Tracheo-oesophageal fistula [Recovered/Resolved with Sequelae]
  - Developmental coordination disorder [Unknown]
  - Motor developmental delay [Unknown]
  - Atrial septal defect [Unknown]

NARRATIVE: CASE EVENT DATE: 20151130
